FAERS Safety Report 6876080-0 (Version None)
Quarter: 2010Q3

REPORT INFORMATION
  Report Type: 
  Country: None (occurrence: None)
  Receive Date: 20100727
  Receipt Date: 20100714
  Transmission Date: 20110219
  Serious: Yes (Other)
  Sender: FDA-Public Use
  Company Number: IE-BAYER-201031563GPV

PATIENT
  Age: 53 Year
  Sex: Female

DRUGS (2)
  1. MIRENA [Suspect]
     Indication: MENORRHAGIA
     Route: 015
     Dates: start: 20100201
  2. ELTROXIN [Concomitant]
     Indication: HYPOTHYROIDISM

REACTIONS (3)
  - DEPRESSION [None]
  - FATIGUE [None]
  - PRURITUS [None]
